FAERS Safety Report 8099838-1 (Version None)
Quarter: 2012Q1

REPORT INFORMATION
  Report Type: 
  Country: None (occurrence: None)
  Receive Date: 20120129
  Receipt Date: 20111010
  Transmission Date: 20120608
  Serious: No
  Sender: FDA-Public Use
  Company Number: US-ABBOTT-11P-163-0862606-00

PATIENT
  Sex: Female
  Weight: 86.26 kg

DRUGS (9)
  1. HUMIRA [Suspect]
     Indication: CROHN'S DISEASE
     Dates: start: 20110527, end: 20110527
  2. IMURAN [Concomitant]
     Indication: CROHN'S DISEASE
  3. TRAZODONE HCL [Concomitant]
     Indication: INSOMNIA
  4. PRILOSEC [Concomitant]
     Indication: GASTROOESOPHAGEAL REFLUX DISEASE
  5. PENTASA [Concomitant]
     Indication: CROHN'S DISEASE
  6. PAXIL [Concomitant]
     Indication: ANXIETY
  7. HUMIRA [Suspect]
     Dates: start: 20110624
  8. FENOFIBRATE [Concomitant]
     Indication: BLOOD TRIGLYCERIDES INCREASED
  9. HUMIRA [Suspect]
     Dates: start: 20110610, end: 20110610

REACTIONS (3)
  - FATIGUE [None]
  - HEADACHE [None]
  - DRUG INEFFECTIVE [None]
